FAERS Safety Report 8569938-8 (Version None)
Quarter: 2012Q3

REPORT INFORMATION
  Report Type: 
  Country: None (occurrence: None)
  Receive Date: 20120803
  Receipt Date: 20090227
  Transmission Date: 20120928
  Serious: Yes (Life-Threatening, Disabling)
  Sender: FDA-Public Use
  Company Number: CA-009507513-2008-185294-NL

PATIENT

DRUGS (2)
  1. DESOGESTREL AND ETHINYL ESTRADIOL [Suspect]
     Indication: PRODUCT USED FOR UNKNOWN INDICATION
     Dosage: DOSE TEXT: 25 MG ESTROGEN, CONTINUING: NO, FREQUENCY: QD
     Route: 048
     Dates: start: 20061101, end: 20070810
  2. ATOVAQUONE (+) CHLORGUANIDE HYDROCHLORIDE [Concomitant]
     Indication: MALARIA PROPHYLAXIS
     Dosage: UNK DF, UNK

REACTIONS (3)
  - THROMBOPHLEBITIS [None]
  - MOBILITY DECREASED [None]
  - EMBOLISM [None]
